FAERS Safety Report 8310827 (Version 2)
Quarter: 2012Q4

REPORT INFORMATION
  Report Type: 
  Country: US (occurrence: IL)
  Receive Date: 20111226
  Receipt Date: 20120921
  Transmission Date: 20130627
  Serious: Yes (Hospitalization)
  Sender: FDA-Public Use
  Company Number: PHHO2011IL14230

PATIENT
  Age: 56 Year
  Sex: Male

DRUGS (14)
  1. LOPRESSOR [Suspect]
  2. TEGRETOL [Suspect]
     Dosage: UNK
  3. LYRICA [Suspect]
     Dosage: UNK
  4. AMLODIPINE [Suspect]
  5. SAXAGLIPTIN [Suspect]
     Indication: TYPE 2 DIABETES MELLITUS
     Dosage: UNK
     Dates: start: 20101208
  6. METFORMIN HYDROCHLORIDE [Suspect]
     Indication: TYPE 2 DIABETES MELLITUS
     Dosage: 2550 mg, UNK
  7. HUMALOG [Suspect]
     Indication: TYPE 2 DIABETES MELLITUS
     Dosage: 60 IU, UNK
  8. LANTUS [Suspect]
     Indication: TYPE 2 DIABETES MELLITUS
     Dosage: 40 IU, UNK
  9. LANTUS [Suspect]
     Dosage: 30 IU per unit
  10. ASPIRIN [Concomitant]
  11. NITRATES [Concomitant]
  12. DIURETICS [Concomitant]
  13. BETA BLOCKING AGENTS [Concomitant]
  14. ACE INHIBITORS [Concomitant]

REACTIONS (2)
  - Angina unstable [Recovered/Resolved]
  - Syncope [Recovered/Resolved]
